FAERS Safety Report 14697812 (Version 1)
Quarter: 2018Q1

REPORT INFORMATION
  Report Type: Spontaneous
  Country: US (occurrence: US)
  Receive Date: 20180330
  Receipt Date: 20180330
  Transmission Date: 20180509
  Serious: No
  Sender: FDA-Public Use
  Company Number: US-SA-2018SA020175

PATIENT
  Sex: Female

DRUGS (1)
  1. ALLEGRA [Suspect]
     Active Substance: FEXOFENADINE HYDROCHLORIDE
     Route: 065

REACTIONS (6)
  - Dry throat [Unknown]
  - Nasal congestion [Unknown]
  - Nervous system disorder [Unknown]
  - Unevaluable event [Unknown]
  - Head discomfort [Unknown]
  - Nasopharyngitis [Unknown]
